FAERS Safety Report 24914197 (Version 2)
Quarter: 2025Q2

REPORT INFORMATION
  Report Type: Report from Study
  Country: US (occurrence: US)
  Receive Date: 20250202
  Receipt Date: 20250401
  Transmission Date: 20250717
  Serious: Yes (Other)
  Sender: ABBVIE
  Company Number: US-ABBVIE-6111135

PATIENT
  Age: 61 Year
  Sex: Male

DRUGS (1)
  1. RINVOQ [Suspect]
     Active Substance: UPADACITINIB
     Indication: Ankylosing spondylitis
     Route: 048
     Dates: start: 20221018

REACTIONS (3)
  - Abscess [Unknown]
  - Rotator cuff syndrome [Recovering/Resolving]
  - Vertebral osteophyte [Unknown]

NARRATIVE: CASE EVENT DATE: 20241201
